FAERS Safety Report 9247632 (Version 1)
Quarter: 2013Q1

REPORT INFORMATION
  Report Type: Spontaneous
  Country: US (occurrence: None)
  Receive Date: 20121130
  Receipt Date: 20121130
  Transmission Date: 20140127
  Serious: Yes (Other)
  Sender: FDA-Public Use
  Company Number: 1111USA02496

PATIENT
  Age: 62 Year
  Sex: Female
  Weight: 65.3 kg

DRUGS (3)
  1. FOSAMAX D [Suspect]
     Indication: OSTEOPOROSIS
     Route: 048
     Dates: start: 2005, end: 2007
  2. FOSAMAX (ALENDRONATE SODIUM) TABLET [Suspect]
     Indication: OSTEOPOROSIS
  3. LIPITOR (ATORVASTATIN CALCIUM) [Concomitant]

REACTIONS (4)
  - Osteonecrosis of jaw [None]
  - Dysphagia [None]
  - Hyporeflexia [None]
  - Nervous system disorder [None]
